FAERS Safety Report 9986408 (Version 1)
Quarter: 2014Q1

REPORT INFORMATION
  Report Type: Spontaneous
  Country: US (occurrence: US)
  Receive Date: 20140307
  Receipt Date: 20140307
  Transmission Date: 20141002
  Serious: No
  Sender: FDA-Public Use
  Company Number: US-ASTRAZENECA-2014SE08984

PATIENT
  Age: 56 Year
  Sex: Female
  Weight: 59.9 kg

DRUGS (1)
  1. NEXIUM [Suspect]
     Indication: GASTROOESOPHAGEAL REFLUX DISEASE
     Route: 048
     Dates: start: 2012, end: 20140204

REACTIONS (2)
  - Burning sensation [Not Recovered/Not Resolved]
  - Intentional drug misuse [Not Recovered/Not Resolved]
